FAERS Safety Report 18667181 (Version 1)
Quarter: 2020Q4

REPORT INFORMATION
  Report Type: Spontaneous
  Country: PL (occurrence: PL)
  Receive Date: 20201228
  Receipt Date: 20201228
  Transmission Date: 20210114
  Serious: Yes (Other)
  Sender: FDA-Public Use
  Company Number: PL-OCTA-ALB01620PL

PATIENT
  Age: 45 Year
  Sex: Male
  Weight: 63 kg

DRUGS (1)
  1. ALBUNORM 20% [Suspect]
     Active Substance: ALBUMIN HUMAN
     Indication: HYPOALBUMINAEMIA
     Dates: start: 20181203, end: 20181203

REACTIONS (4)
  - Cough [Unknown]
  - Rash [Unknown]
  - Pruritus [Unknown]
  - Dyspnoea [Unknown]

NARRATIVE: CASE EVENT DATE: 20181203
